FAERS Safety Report 20096242 (Version 2)
Quarter: 2021Q4

REPORT INFORMATION
  Report Type: Report from Study
  Country: US (occurrence: US)
  Receive Date: 20211122
  Receipt Date: 20211216
  Transmission Date: 20220304
  Serious: Yes (Other)
  Sender: FDA-Public Use
  Company Number: US-JAZZ-2021-US-020224

PATIENT
  Age: 40 Year
  Sex: Female

DRUGS (4)
  1. XYWAV [Suspect]
     Active Substance: CALCIUM OXYBATE\MAGNESIUM OXYBATE\POTASSIUM OXYBATE\SODIUM OXYBATE
     Indication: Hypersomnia
     Dosage: 2.5 GRAM, QD
     Route: 048
     Dates: start: 20211022, end: 20211022
  2. XYWAV [Suspect]
     Active Substance: CALCIUM OXYBATE\MAGNESIUM OXYBATE\POTASSIUM OXYBATE\SODIUM OXYBATE
     Dosage: 2.5 GRAM, BID
     Route: 048
     Dates: start: 202110, end: 202110
  3. XYWAV [Suspect]
     Active Substance: CALCIUM OXYBATE\MAGNESIUM OXYBATE\POTASSIUM OXYBATE\SODIUM OXYBATE
     Dosage: 2 GRAM, QD
     Route: 048
     Dates: start: 202110
  4. MODAFINIL [Concomitant]
     Active Substance: MODAFINIL
     Indication: Product used for unknown indication
     Dosage: 0000
     Dates: start: 20201020

REACTIONS (8)
  - Weight decreased [Unknown]
  - Decreased appetite [Unknown]
  - Disturbance in attention [Recovering/Resolving]
  - Abdominal discomfort [Not Recovered/Not Resolved]
  - Somnolence [Recovering/Resolving]
  - Confusional state [Unknown]
  - Nausea [Unknown]
  - Dizziness [Unknown]

NARRATIVE: CASE EVENT DATE: 20211001
